FAERS Safety Report 20146515 (Version 12)
Quarter: 2023Q2

REPORT INFORMATION
  Report Type: Spontaneous
  Country: IN (occurrence: IN)
  Receive Date: 20211203
  Receipt Date: 20230515
  Transmission Date: 20230721
  Serious: Yes (Other)
  Sender: FDA-Public Use
  Company Number: IN-PFIZER INC-2020488270

PATIENT
  Age: 61 Year
  Sex: Female

DRUGS (17)
  1. DACOMITINIB [Suspect]
     Active Substance: DACOMITINIB
     Indication: Lung adenocarcinoma
     Dosage: 45 MG, DAILY (15 MG 3 TAB ONCE DAILY)
     Route: 048
  2. DACOMITINIB [Suspect]
     Active Substance: DACOMITINIB
     Dosage: 45 MG, 1X/DAY
     Route: 048
     Dates: end: 20210819
  3. DACOMITINIB [Suspect]
     Active Substance: DACOMITINIB
     Dosage: 30 MG, 1X/DAY (1HR BEFORE FOOD)
     Route: 048
  4. DACOMITINIB [Suspect]
     Active Substance: DACOMITINIB
     Dosage: 15 MG, OD
     Route: 048
  5. HYDROCORTISONE [Concomitant]
     Active Substance: HYDROCORTISONE
     Indication: Rash
     Dosage: UNK
  6. DOXYCYCLINE [Concomitant]
     Active Substance: DOXYCYCLINE
     Dosage: 100 MG, 1X/DAY
  7. LOPERAMIDE [Concomitant]
     Active Substance: LOPERAMIDE
     Indication: Diarrhoea
     Dosage: 2 MG, AS NEEDED
  8. FAMOTIDINE [Concomitant]
     Active Substance: FAMOTIDINE
     Dosage: 20 MG, AS NEEDED
  9. ALLEGRA [Concomitant]
     Active Substance: FEXOFENADINE HYDROCHLORIDE
     Indication: Pruritus
     Dosage: 120 MG, AS NEEDED
  10. SHELCAL [CALCIUM CARBONATE;COLECALCIFEROL] [Concomitant]
     Dosage: 1 DF, 2X/DAY
  11. SHELCAL [CALCIUM CARBONATE;COLECALCIFEROL] [Concomitant]
     Dosage: 500 MG, 2X/DAY
  12. SHELCAL [CALCIUM CARBONATE;COLECALCIFEROL] [Concomitant]
     Dosage: 500 MG, 1X/DAY
  13. LYRICA [Concomitant]
     Active Substance: PREGABALIN
     Dosage: 75 MG, 1X/DAY
  14. DENOSUMAB [Concomitant]
     Active Substance: DENOSUMAB
     Dosage: 120 DF, SINGLE
     Route: 058
     Dates: start: 20220421, end: 20220421
  15. DENOSUMAB [Concomitant]
     Active Substance: DENOSUMAB
     Dosage: 120 MG
     Route: 058
  16. LEVOTHYROXINE [Concomitant]
     Active Substance: LEVOTHYROXINE
     Dosage: 50 UG, 1X/DAY
     Dates: start: 20220421
  17. ULTRACET [Concomitant]
     Active Substance: ACETAMINOPHEN\TRAMADOL HYDROCHLORIDE
     Indication: Pain
     Dosage: SOS FOR PAIN (MAX-3 TABS 1 DAY)

REACTIONS (38)
  - Blood pressure increased [Unknown]
  - Carcinoembryonic antigen increased [Unknown]
  - Illness [Unknown]
  - Pulmonary fibrosis [Unknown]
  - Pancreatic duct dilatation [Unknown]
  - Blood thyroid stimulating hormone increased [Unknown]
  - Diarrhoea [Unknown]
  - Rash [Unknown]
  - Chest pain [Unknown]
  - Back pain [Unknown]
  - Muscular weakness [Unknown]
  - Palmar-plantar erythrodysaesthesia syndrome [Unknown]
  - Paronychia [Unknown]
  - Vomiting [Unknown]
  - C-reactive protein decreased [Unknown]
  - Headache [Unknown]
  - Meibomian gland dysfunction [Unknown]
  - Aspartate aminotransferase increased [Unknown]
  - Blood creatinine increased [Unknown]
  - Nodule [Unknown]
  - Pulmonary calcification [Unknown]
  - Hepatic mass [Unknown]
  - Cholelithiasis [Unknown]
  - Spleen disorder [Unknown]
  - Uterine leiomyoma [Unknown]
  - Bladder dilatation [Unknown]
  - Bone lesion [Unknown]
  - Scoliosis [Unknown]
  - Neoplasm progression [Unknown]
  - Weight increased [Unknown]
  - Haemoglobin decreased [Unknown]
  - Red blood cell count decreased [Unknown]
  - Haematocrit decreased [Unknown]
  - Body temperature decreased [Unknown]
  - Hepatomegaly [Unknown]
  - Blood pressure diastolic decreased [Unknown]
  - Blood bilirubin unconjugated decreased [Unknown]
  - Blood chloride increased [Unknown]

NARRATIVE: CASE EVENT DATE: 20200204
